FAERS Safety Report 6927494-1 (Version None)
Quarter: 2010Q3

REPORT INFORMATION
  Report Type: 
  Country: None (occurrence: None)
  Receive Date: 20100817
  Receipt Date: 20100810
  Transmission Date: 20110219
  Serious: Yes (Life-Threatening, Hospitalization, Disabling, Other)
  Sender: FDA-Public Use
  Company Number: DE-JNJFOC-20090608724

PATIENT
  Sex: Male

DRUGS (14)
  1. GALANTAMINE HYDROBROMIDE [Suspect]
     Indication: PRODUCT USED FOR UNKNOWN INDICATION
     Route: 065
     Dates: start: 20090219
  2. DIPIPERON [Suspect]
     Indication: PRODUCT USED FOR UNKNOWN INDICATION
     Route: 048
     Dates: start: 20090219
  3. CIPRALEX [Suspect]
     Indication: PRODUCT USED FOR UNKNOWN INDICATION
     Dosage: SINCE THREE DAYS
     Route: 065
  4. CIPRALEX [Suspect]
     Route: 065
  5. CIPRALEX [Suspect]
     Route: 065
  6. CIPRALEX [Suspect]
     Route: 065
  7. ESIDRIX [Suspect]
     Indication: PRODUCT USED FOR UNKNOWN INDICATION
     Route: 065
  8. ESIDRIX [Suspect]
     Route: 065
  9. AMLODIPINE [Concomitant]
     Route: 065
  10. AMLODIPINE [Concomitant]
     Route: 065
  11. MARCUMAR [Concomitant]
     Route: 065
  12. CAPTOHEXAL [Concomitant]
     Route: 065
  13. CAPTOHEXAL [Concomitant]
     Route: 065
  14. CALCIUM [Concomitant]
     Route: 048

REACTIONS (6)
  - ATRIOVENTRICULAR BLOCK [None]
  - CARDIAC ARREST [None]
  - CORONARY ARTERY DISEASE [None]
  - ELECTROCARDIOGRAM QT PROLONGED [None]
  - SYNCOPE [None]
  - TORSADE DE POINTES [None]
